FAERS Safety Report 9267358 (Version 2)
Quarter: 2013Q2

REPORT INFORMATION
  Report Type: Spontaneous
  Country: IT (occurrence: IT)
  Receive Date: 20130502
  Receipt Date: 20130517
  Transmission Date: 20140414
  Serious: Yes (Other)
  Sender: FDA-Public Use
  Company Number: IT-CELGENEUS-083-20785-13043999

PATIENT
  Age: 64 Year
  Sex: Female

DRUGS (2)
  1. THALIDOMIDE [Suspect]
     Indication: PLASMA CELL MYELOMA
     Dosage: 50 MILLIGRAM
     Route: 048
     Dates: start: 20130226, end: 20130228
  2. THALIDOMIDE [Suspect]
     Dosage: DOSE REDUCED
     Route: 048

REACTIONS (2)
  - Lipoma [Not Recovered/Not Resolved]
  - Neuropathy peripheral [Not Recovered/Not Resolved]
